FAERS Safety Report 9188867 (Version 2)
Quarter: 2013Q2

REPORT INFORMATION
  Report Type: Spontaneous
  Country: AU (occurrence: AU)
  Receive Date: 20130326
  Receipt Date: 20130429
  Transmission Date: 20140414
  Serious: Yes (Death, Hospitalization)
  Sender: FDA-Public Use
  Company Number: AU-B.I. PHARMACEUTICALS,INC./RIDGEFIELD-2013-AU-00350AU

PATIENT
  Age: 91 Year
  Sex: Male

DRUGS (6)
  1. PRADAXA [Suspect]
     Indication: CEREBROVASCULAR ACCIDENT PROPHYLAXIS
     Dosage: 220 MG
     Dates: start: 20111024, end: 20130206
  2. PRADAXA [Suspect]
     Indication: ATRIAL FIBRILLATION
  3. PROTON PUMP INHIBITOR [Concomitant]
  4. CLOPIDOGREL [Concomitant]
  5. SELECTIVE SEROTONIN REUPTAKE INHIBITOR [Concomitant]
  6. ANTIPLATELETS [Concomitant]

REACTIONS (2)
  - Sepsis [Fatal]
  - Arthritis bacterial [Fatal]
